FAERS Safety Report 19747183 (Version 1)
Quarter: 2021Q3

REPORT INFORMATION
  Report Type: Report from Study
  Country: US (occurrence: US)
  Receive Date: 20210826
  Receipt Date: 20210826
  Transmission Date: 20211014
  Serious: Yes (Hospitalization, Other)
  Sender: FDA-Public Use
  Company Number: US-BEIGENE AUS PTY LTD-BGN-2021-000036

PATIENT

DRUGS (4)
  1. BRUKINSA [Suspect]
     Active Substance: ZANUBRUTINIB
     Dosage: 160 MILLIGRAM, QHS
     Route: 048
     Dates: start: 20210302
  2. BRUKINSA [Suspect]
     Active Substance: ZANUBRUTINIB
     Dosage: 160 MILLIGRAM, QD,QHS
     Route: 048
     Dates: start: 20201118, end: 20210104
  3. BRUKINSA [Suspect]
     Active Substance: ZANUBRUTINIB
     Indication: MANTLE CELL LYMPHOMA
     Dosage: 80 MILLIGRAM, BID
     Route: 048
     Dates: start: 20201118
  4. BRUKINSA [Suspect]
     Active Substance: ZANUBRUTINIB
     Dosage: 180 MILLIGRAM, QHS
     Route: 048
     Dates: start: 20201118

REACTIONS (9)
  - Cytopenia [Unknown]
  - Blood count abnormal [Unknown]
  - COVID-19 [Unknown]
  - Cervical vertebral fracture [Recovering/Resolving]
  - Cough [Not Recovered/Not Resolved]
  - Prescribed underdose [Unknown]
  - Haemorrhage [Unknown]
  - Road traffic accident [Unknown]
  - Diarrhoea [Unknown]

NARRATIVE: CASE EVENT DATE: 20201118
